FAERS Safety Report 12365588 (Version 1)
Quarter: 2016Q2

REPORT INFORMATION
  Report Type: Spontaneous
  Country: US (occurrence: None)
  Receive Date: 20160512
  Receipt Date: 20160512
  Transmission Date: 20160815
  Serious: Yes (Hospitalization)
  Sender: FDA-Public Use
  Company Number: None

PATIENT
  Age: 57 Year
  Sex: Male
  Weight: 66.23 kg

DRUGS (5)
  1. GABAPENTIN. [Concomitant]
     Active Substance: GABAPENTIN
  2. BACLOFEN. [Concomitant]
     Active Substance: BACLOFEN
  3. DULOXETINE. [Concomitant]
     Active Substance: DULOXETINE
  4. FENTANYL. [Concomitant]
     Active Substance: FENTANYL
  5. ZICONOTIDE, 4 MCG/ML [Suspect]
     Active Substance: ZICONOTIDE
     Indication: PAIN
     Route: 037
     Dates: start: 20151228, end: 20160415

REACTIONS (3)
  - Anxiety [None]
  - Visual impairment [None]
  - Hallucination, auditory [None]

NARRATIVE: CASE EVENT DATE: 20160329
